FAERS Safety Report 5946977-4 (Version None)
Quarter: 2008Q4

REPORT INFORMATION
  Report Type: 
  Country: None (occurrence: None)
  Receive Date: 20081107
  Receipt Date: 20081107
  Transmission Date: 20090506
  Serious: Yes (Life-Threatening, Other)
  Sender: FDA-Public Use
  Company Number: None

PATIENT
  Age: 40 Year
  Sex: Female
  Weight: 58.9676 kg

DRUGS (2)
  1. VENTOLIN HFA [Suspect]
     Indication: ASTHMA
     Dosage: 2 PUFFS 4-6 HOURS OTHER
     Route: 050
  2. PROAIR HFA [Concomitant]

REACTIONS (3)
  - DRUG EFFECT DECREASED [None]
  - MALAISE [None]
  - PRODUCT QUALITY ISSUE [None]
